FAERS Safety Report 6861491-X (Version None)
Quarter: 2010Q3

REPORT INFORMATION
  Report Type: 
  Country: None (occurrence: None)
  Receive Date: 20100720
  Receipt Date: 20100720
  Transmission Date: 20110219
  Serious: Yes (Hospitalization)
  Sender: FDA-Public Use
  Company Number: None

PATIENT
  Age: 72 Year
  Sex: Male
  Weight: 81.6475 kg

DRUGS (1)
  1. RECLAST [Suspect]
     Indication: OSTEOPENIA
     Dosage: 5 MG INFUSION ONCE YEARLY IV (INFUSION GIVE ON ONE DAY)
     Route: 042

REACTIONS (3)
  - ARTHRALGIA [None]
  - INSOMNIA [None]
  - PAIN [None]
